FAERS Safety Report 7507459-1 (Version None)
Quarter: 2011Q2

REPORT INFORMATION
  Report Type: 
  Country: None (occurrence: None)
  Receive Date: 20110526
  Receipt Date: 20110524
  Transmission Date: 20111010
  Serious: Yes (Life-Threatening)
  Sender: FDA-Public Use
  Company Number: DE-MERCK-1105DEU00119

PATIENT
  Age: 80 Year
  Sex: Female
  Weight: 65 kg

DRUGS (16)
  1. LEVOTHYROXINE SODIUM [Concomitant]
     Indication: GOITRE
     Route: 048
     Dates: start: 20080201
  2. AMLODIPINE [Concomitant]
     Indication: HYPERTENSION
     Route: 048
     Dates: start: 20070601
  3. FUROSEMIDE [Concomitant]
     Route: 048
     Dates: start: 20100501
  4. RAMIPRIL [Concomitant]
     Indication: HYPERTENSION
     Route: 048
     Dates: start: 20061201
  5. PHENPROCOUMON [Suspect]
     Indication: ATRIAL FIBRILLATION
     Route: 048
     Dates: start: 20080401
  6. BISOPROLOL [Concomitant]
     Route: 048
     Dates: start: 20070901
  7. BISOPROLOL [Concomitant]
     Route: 048
  8. BROMAZEPAM [Concomitant]
     Indication: INSOMNIA
     Route: 048
     Dates: start: 20090601
  9. VALPROATE SODIUM [Concomitant]
     Indication: SYNCOPE
     Route: 048
  10. DOXEPIN HYDROCHLORIDE [Concomitant]
     Indication: INSOMNIA
     Route: 048
     Dates: start: 20100801
  11. FOSAMAX [Suspect]
     Route: 048
     Dates: start: 20101001
  12. ISOSORBIDE DINITRATE [Concomitant]
     Indication: HYPERTENSION
     Route: 048
     Dates: start: 20050401
  13. CHOLECALCIFEROL [Concomitant]
     Route: 065
  14. FUROSEMIDE [Concomitant]
     Indication: OEDEMA PERIPHERAL
     Route: 048
     Dates: start: 20100301
  15. OPIPRAMOL HYDROCHLORIDE [Concomitant]
     Route: 065
     Dates: start: 20100801, end: 20100901
  16. HYDROCHLOROTHIAZIDE AND OLMESARTAN MEDOXOMIL [Concomitant]
     Indication: HYPERTENSION
     Route: 048
     Dates: start: 20070101

REACTIONS (2)
  - DRUG EFFECT INCREASED [None]
  - DRUG INTERACTION [None]
